FAERS Safety Report 20737351 (Version 1)
Quarter: 2022Q2

REPORT INFORMATION
  Report Type: Report from Study
  Country: NL (occurrence: NL)
  Receive Date: 20220421
  Receipt Date: 20220421
  Transmission Date: 20220720
  Serious: Yes (Other)
  Sender: FDA-Public Use
  Company Number: NL-ABBVIE-22K-114-4366690-00

PATIENT
  Sex: Male
  Weight: 12 kg

DRUGS (1)
  1. GLECAPREVIR\PIBRENTASVIR [Suspect]
     Active Substance: GLECAPREVIR\PIBRENTASVIR
     Indication: Product used for unknown indication
     Dosage: 3 SACHETS
     Route: 048

REACTIONS (3)
  - Asthenia [Unknown]
  - Vomiting [Unknown]
  - Nausea [Unknown]
